FAERS Safety Report 6544692-X (Version None)
Quarter: 2010Q1

REPORT INFORMATION
  Report Type: 
  Country: None (occurrence: None)
  Receive Date: 20100121
  Receipt Date: 20100111
  Transmission Date: 20100710
  Serious: Yes (Life-Threatening, Hospitalization, Other)
  Sender: FDA-Public Use
  Company Number: FR-ELI_LILLY_AND_COMPANY-FR201001001508

PATIENT
  Sex: Female

DRUGS (2)
  1. GEMZAR [Suspect]
     Indication: MALIGNANT NEOPLASM OF AMPULLA OF VATER
     Dosage: 1400 MG, WEEKLY FOR THREE WEEKS AND THEN ONE WEEK OF REST
     Route: 042
     Dates: start: 20090710, end: 20091021
  2. KYTRIL [Concomitant]
     Dosage: 1 D/F, DAILY (1/D)
     Route: 048
     Dates: start: 20090710, end: 20091021

REACTIONS (4)
  - CARDIO-RESPIRATORY ARREST [None]
  - NAUSEA [None]
  - THROMBOSIS [None]
  - VOMITING [None]
